FAERS Safety Report 11201463 (Version 1)
Quarter: 2015Q2

REPORT INFORMATION
  Report Type: Report from Study
  Country: DE (occurrence: None)
  Receive Date: 20150617
  Receipt Date: 20150617
  Transmission Date: 20150821
  Serious: Yes (Hospitalization, Disabling, Other)
  Sender: FDA-Public Use
  Company Number: B0924791A

PATIENT
  Age: 48 Year
  Sex: Male
  Weight: 72 kg

DRUGS (8)
  1. AMLODIPINE [Concomitant]
     Active Substance: AMLODIPINE BESYLATE
  2. MARAVIROC [Suspect]
     Active Substance: MARAVIROC
     Indication: HIV INFECTION
     Route: 048
     Dates: start: 20120625, end: 20130925
  3. ATAZANAVIR (ATAZANAVIR) [Concomitant]
     Active Substance: ATAZANAVIR
  4. RAMIPRIL (RAMIPRIL) [Concomitant]
     Active Substance: RAMIPRIL
  5. IBUPROFEN (IBUPROFEN) [Concomitant]
     Active Substance: IBUPROFEN
  6. GLYCOPYRRONIUM (GLYCOPYRRONIUM) [Concomitant]
  7. FOSTER (AMBIGUOUS MEDICATION) [Concomitant]
  8. RITONAVIR (RITONAVIR) [Concomitant]
     Active Substance: RITONAVIR

REACTIONS (7)
  - Diarrhoea [None]
  - Depression [None]
  - AIDS dementia complex [None]
  - Fall [None]
  - Adjustment disorder [None]
  - Athetosis [None]
  - Weight decreased [None]

NARRATIVE: CASE EVENT DATE: 20130926
